FAERS Safety Report 8247125-0 (Version None)
Quarter: 2012Q1

REPORT INFORMATION
  Report Type: 
  Country: None (occurrence: None)
  Receive Date: 20120330
  Receipt Date: 20120326
  Transmission Date: 20120608
  Serious: Yes (Hospitalization)
  Sender: FDA-Public Use
  Company Number: FR-ROCHE-1053056

PATIENT
  Sex: Male

DRUGS (4)
  1. DEPAKENE [Concomitant]
     Route: 048
     Dates: start: 20050101
  2. URBANYL [Concomitant]
     Dosage: URBANYL 10 FOR 5 DAYS-DECREASING DOSE
  3. TAMIFLU [Suspect]
     Indication: INFLUENZA
     Route: 048
     Dates: start: 20120213, end: 20120219
  4. ACETYLCYSTEINE [Suspect]
     Indication: INFLUENZA
     Route: 045
     Dates: start: 20120213, end: 20120219

REACTIONS (1)
  - CONVULSION [None]
